FAERS Safety Report 9916899 (Version 1)
Quarter: 2014Q1

REPORT INFORMATION
  Report Type: Spontaneous
  Country: US (occurrence: US)
  Receive Date: 20140221
  Receipt Date: 20140221
  Transmission Date: 20141002
  Serious: No
  Sender: FDA-Public Use
  Company Number: US-MYLANLABS-2013S1001689

PATIENT
  Age: 9 Year
  Sex: Male

DRUGS (2)
  1. GUANFACINE HYDROCHLORIDE [Suspect]
     Indication: DISTURBANCE IN ATTENTION
  2. GUANFACINE HYDROCHLORIDE [Suspect]
     Indication: OFF LABEL USE

REACTIONS (1)
  - Disturbance in attention [Not Recovered/Not Resolved]
